FAERS Safety Report 21934965 (Version 2)
Quarter: 2023Q1

REPORT INFORMATION
  Report Type: Spontaneous
  Country: RO (occurrence: None)
  Receive Date: 20230201
  Receipt Date: 20230209
  Transmission Date: 20230417
  Serious: Yes (Death, Hospitalization)
  Sender: FDA-Public Use
  Company Number: RO-ROCHE-3271339

PATIENT
  Age: 15 Year
  Sex: Female

DRUGS (2)
  1. EVRYSDI [Suspect]
     Active Substance: RISDIPLAM
     Indication: Spinal muscular atrophy
     Route: 065
     Dates: start: 20220816
  2. EVRYSDI [Suspect]
     Active Substance: RISDIPLAM
     Dosage: DOSE OF 0.25 MG/ML, DAILY VOLUME OF 5.00 ML
     Route: 048
     Dates: start: 202210

REACTIONS (2)
  - Influenza [Fatal]
  - Respiratory disorder [Fatal]
